FAERS Safety Report 11790774 (Version 1)
Quarter: 2015Q4

REPORT INFORMATION
  Report Type: Spontaneous
  Country: DK (occurrence: FI)
  Receive Date: 20151201
  Receipt Date: 20151201
  Transmission Date: 20160305
  Serious: Yes (Death)
  Sender: FDA-Public Use
  Company Number: FI-FRI-1000081240

PATIENT
  Age: 63 Year
  Sex: Male

DRUGS (7)
  1. TAMBOCOR [Concomitant]
     Active Substance: FLECAINIDE ACETATE
     Indication: PRODUCT USED FOR UNKNOWN INDICATION
     Dosage: 200 MG
     Route: 048
     Dates: start: 20140204
  2. DIOVAN COMP [Concomitant]
     Active Substance: HYDROCHLOROTHIAZIDE\VALSARTAN
     Indication: PRODUCT USED FOR UNKNOWN INDICATION
     Dosage: 160/25 MG
     Route: 048
     Dates: start: 20140624
  3. MAREVAN [Interacting]
     Active Substance: WARFARIN SODIUM
     Indication: ATRIAL FIBRILLATION
     Dosage: UNKNOWN
     Route: 048
     Dates: start: 20150122
  4. SIMVASTATIN. [Concomitant]
     Active Substance: SIMVASTATIN
     Indication: PRODUCT USED FOR UNKNOWN INDICATION
     Dosage: 40 MG
     Route: 048
     Dates: start: 20121130
  5. XARELTO [Interacting]
     Active Substance: RIVAROXABAN
     Indication: ATRIAL FIBRILLATION
     Dosage: 20 MG
     Route: 048
     Dates: start: 20140403
  6. ZANIDIP [Concomitant]
     Active Substance: LERCANIDIPINE HYDROCHLORIDE
     Indication: PRODUCT USED FOR UNKNOWN INDICATION
     Dosage: 10 MG
     Route: 048
     Dates: start: 20140220
  7. CITALOPRAM [Suspect]
     Active Substance: CITALOPRAM HYDROBROMIDE
     Indication: AFFECTIVE DISORDER
     Dosage: UNKNOWN
     Route: 048
     Dates: start: 20091022

REACTIONS (2)
  - Cerebral haemorrhage [Fatal]
  - Drug interaction [Fatal]

NARRATIVE: CASE EVENT DATE: 20151019
